FAERS Safety Report 11002397 (Version 1)
Quarter: 2015Q2

REPORT INFORMATION
  Report Type: Report from Study
  Country: GB (occurrence: GB)
  Receive Date: 20150408
  Receipt Date: 20150408
  Transmission Date: 20150821
  Serious: Yes (Other)
  Sender: FDA-Public Use
  Company Number: GB-GLAXOSMITHKLINE-Z0020029B

PATIENT
  Age: 30 Year
  Sex: Male
  Weight: 60 kg

DRUGS (7)
  1. DABRAFENIB [Suspect]
     Active Substance: DABRAFENIB
     Indication: MALIGNANT MELANOMA
     Dosage: 150 MG, BID
     Route: 048
     Dates: start: 20130418
  2. TRAMETINIB [Suspect]
     Active Substance: TRAMETINIB
     Indication: MALIGNANT MELANOMA
     Dosage: 2 MG, QD
     Route: 048
     Dates: start: 20130418
  3. LYMECYCLINE [Concomitant]
     Active Substance: LYMECYCLINE
     Indication: RASH
     Route: 048
     Dates: start: 20131107
  4. EPIDUO (ADAPALENE/BENZOYL PEROXIDE) [Concomitant]
     Indication: RASH
     Route: 061
     Dates: start: 20131003
  5. PREDNISOLONE. [Concomitant]
     Active Substance: PREDNISOLONE
     Indication: PYREXIA
     Route: 048
     Dates: start: 20120715
  6. PREDNISOLONE. [Concomitant]
     Active Substance: PREDNISOLONE
     Indication: PYREXIA
  7. LANSOPRAZOLE. [Concomitant]
     Active Substance: LANSOPRAZOLE
     Indication: DYSPEPSIA
     Route: 048
     Dates: start: 20131107

REACTIONS (1)
  - Uveitis [Recovered/Resolved]

NARRATIVE: CASE EVENT DATE: 20140214
